FAERS Safety Report 8524092-3 (Version None)
Quarter: 2012Q3

REPORT INFORMATION
  Report Type: 
  Country: None (occurrence: None)
  Receive Date: 20120720
  Receipt Date: 20120716
  Transmission Date: 20120928
  Serious: Yes (Death)
  Sender: FDA-Public Use
  Company Number: CO-JNJFOC-20120708292

PATIENT
  Age: 22 Month
  Sex: Female

DRUGS (1)
  1. TOPIRAMATE [Suspect]
     Indication: EPILEPSY
     Route: 048
     Dates: start: 20110509

REACTIONS (2)
  - CARDIO-RESPIRATORY ARREST [None]
  - DRUG ADMINISTERED TO PATIENT OF INAPPROPRIATE AGE [None]
